FAERS Safety Report 16843669 (Version 1)
Quarter: 2019Q3

REPORT INFORMATION
  Report Type: Spontaneous
  Country: US (occurrence: US)
  Receive Date: 20190802
  Receipt Date: 20190802
  Transmission Date: 20191005
  Serious: No
  Sender: FDA-Public Use
  Company Number: None

PATIENT
  Age: 50 Year
  Sex: Female

DRUGS (16)
  1. PREGABALIN. [Concomitant]
     Active Substance: PREGABALIN
  2. RAMIPRIL. [Concomitant]
     Active Substance: RAMIPRIL
  3. ALPRAZOLAM. [Concomitant]
     Active Substance: ALPRAZOLAM
  4. FOLIC ACID. [Concomitant]
     Active Substance: FOLIC ACID
  5. QUETIAPINE. [Concomitant]
     Active Substance: QUETIAPINE
  6. FERROUS SULFATE. [Concomitant]
     Active Substance: FERROUS SULFATE
  7. METFORMIN [Concomitant]
     Active Substance: METFORMIN HYDROCHLORIDE
  8. AMLODIPINE [Concomitant]
     Active Substance: AMLODIPINE BESYLATE
  9. CHOLEOALOIFEROL [Concomitant]
  10. GLIMEPIRIDE. [Concomitant]
     Active Substance: GLIMEPIRIDE
  11. LEVOTHYROXINE. [Concomitant]
     Active Substance: LEVOTHYROXINE
  12. OXYCODONE [Concomitant]
     Active Substance: OXYCODONE
  13. ZOLPIDEM [Concomitant]
     Active Substance: ZOLPIDEM TARTRATE
  14. SECUKINUMAB. [Suspect]
     Active Substance: SECUKINUMAB
     Indication: PSORIASIS
     Route: 058
     Dates: end: 20190214
  15. ATORVASTATIN [Concomitant]
     Active Substance: ATORVASTATIN
  16. MONTELUKAST [Concomitant]
     Active Substance: MONTELUKAST SODIUM

REACTIONS (7)
  - Encephalopathy [None]
  - Streptococcal abscess [None]
  - Hemiparesis [None]
  - Rhabdomyolysis [None]
  - Brain abscess [None]
  - Acute kidney injury [None]
  - Toxoplasmosis [None]

NARRATIVE: CASE EVENT DATE: 20190227
